FAERS Safety Report 6084242-8 (Version None)
Quarter: 2009Q1

REPORT INFORMATION
  Report Type: 
  Country: None (occurrence: None)
  Receive Date: 20090219
  Receipt Date: 20090212
  Transmission Date: 20090719
  Serious: No
  Sender: FDA-Public Use
  Company Number: US-ELI_LILLY_AND_COMPANY-US200902003519

PATIENT
  Sex: Male

DRUGS (5)
  1. CIALIS [Suspect]
     Indication: ERECTILE DYSFUNCTION
     Dosage: 5 MG, UNKNOWN
     Route: 065
     Dates: start: 20081108
  2. CIALIS [Suspect]
     Dosage: 20 MG, UNKNOWN
     Route: 065
  3. LEVITRA [Concomitant]
     Dosage: UNK, UNKNOWN
     Route: 065
  4. VIAGRA [Concomitant]
     Dosage: UNK, UNKNOWN
     Route: 065
  5. LISINOPRIL [Concomitant]
     Dosage: 5 MG, UNKNOWN
     Route: 065

REACTIONS (5)
  - ARTHRALGIA [None]
  - DIZZINESS [None]
  - ERECTILE DYSFUNCTION [None]
  - PHOTOPSIA [None]
  - TINNITUS [None]
